FAERS Safety Report 6027695-3 (Version None)
Quarter: 2009Q1

REPORT INFORMATION
  Report Type: 
  Country: None (occurrence: None)
  Receive Date: 20090105
  Receipt Date: 20090105
  Transmission Date: 20090719
  Serious: Yes (Other)
  Sender: FDA-Public Use
  Company Number: DE-WYE-G02784708

PATIENT
  Sex: Male
  Weight: 78 kg

DRUGS (1)
  1. TORISEL [Suspect]
     Indication: METASTATIC RENAL CELL CARCINOMA
     Route: 042
     Dates: start: 20081113, end: 20081127

REACTIONS (3)
  - CONDITION AGGRAVATED [None]
  - METABOLIC ACIDOSIS [None]
  - RENAL FAILURE [None]
